FAERS Safety Report 15133543 (Version 1)
Quarter: 2018Q3

REPORT INFORMATION
  Report Type: Spontaneous
  Country: US (occurrence: US)
  Receive Date: 20180712
  Receipt Date: 20180712
  Transmission Date: 20181010
  Serious: Yes (Hospitalization)
  Sender: FDA-Public Use
  Company Number: US-HORIZON-BUP-0039-2018

PATIENT
  Age: 53 Year
  Sex: Female

DRUGS (5)
  1. TRAMADOL. [Concomitant]
     Active Substance: TRAMADOL
  2. FAMOTIDINE. [Concomitant]
     Active Substance: FAMOTIDINE
  3. BUPHENYL [Suspect]
     Active Substance: SODIUM PHENYLBUTYRATE
     Indication: PRODUCT USED FOR UNKNOWN INDICATION
     Route: 048
     Dates: start: 20151120
  4. FERROUS SULF [Concomitant]
     Active Substance: FERROUS SULFATE
  5. POT CL MICRO TAB [Concomitant]

REACTIONS (1)
  - Internal hernia [Unknown]
